FAERS Safety Report 5027603-8 (Version None)
Quarter: 2006Q2

REPORT INFORMATION
  Report Type: 
  Country: None (occurrence: None)
  Receive Date: 20060616
  Receipt Date: 20060418
  Transmission Date: 20061013
  Serious: Yes (Death, Life-Threatening)
  Sender: FDA-Public Use
  Company Number: JP-AVENTIS-200611275JP

PATIENT
  Age: 92 Year
  Sex: Male
  Weight: 42 kg

DRUGS (8)
  1. LASIX [Suspect]
     Indication: URINE OUTPUT DECREASED
     Route: 041
     Dates: start: 20060418, end: 20060418
  2. UNASYN ORAL SUSPENSION [Concomitant]
     Indication: PNEUMONIA
     Dates: start: 20060317, end: 20060326
  3. MEROPEN [Concomitant]
     Indication: PNEUMONIA
     Dates: start: 20060327, end: 20060331
  4. SOLITA-T3 INJECTION [Concomitant]
     Indication: FLUID REPLACEMENT
     Route: 041
     Dates: start: 20060317, end: 20060424
  5. ASCORBIC ACID [Concomitant]
     Route: 041
     Dates: start: 20060317, end: 20060424
  6. VITAMEDIN CAPSULE [Concomitant]
     Dosage: DOSE: 1 VIAL/DAY
     Route: 041
     Dates: start: 20060317, end: 20060424
  7. MYSLEE [Concomitant]
     Indication: DEMENTIA ALZHEIMER'S TYPE
     Route: 048
     Dates: start: 20051206, end: 20060317
  8. GRAMALIL [Concomitant]
     Indication: DEMENTIA ALZHEIMER'S TYPE
     Dates: start: 20051206, end: 20060317

REACTIONS (3)
  - PRODUCTIVE COUGH [None]
  - RESPIRATORY ARREST [None]
  - RESPIRATORY FAILURE [None]
